FAERS Safety Report 8163623-2 (Version None)
Quarter: 2012Q1

REPORT INFORMATION
  Report Type: 
  Country: None (occurrence: None)
  Receive Date: 20120224
  Receipt Date: 20120222
  Transmission Date: 20120608
  Serious: Yes (Death)
  Sender: FDA-Public Use
  Company Number: US-PFIZER INC-2012029269

PATIENT
  Sex: Male

DRUGS (4)
  1. VERAPAMIL [Concomitant]
     Dosage: 240 MG, 1X/DAY
     Dates: end: 20120104
  2. XANAX [Concomitant]
     Dosage: 1 MG NIGHTLY
     Route: 048
     Dates: end: 20120104
  3. GEODON [Suspect]
     Indication: PSYCHOTIC DISORDER
     Dosage: 40 MG AT EVERY BEDTIME
     Route: 048
     Dates: start: 20110909, end: 20120104
  4. PLAVIX [Concomitant]
     Dosage: 75 MG, 1X/DAY
     Dates: end: 20120104

REACTIONS (5)
  - DEHYDRATION [None]
  - PNEUMONIA ASPIRATION [None]
  - MALNUTRITION [None]
  - CEREBROVASCULAR ACCIDENT [None]
  - CHRONIC OBSTRUCTIVE PULMONARY DISEASE [None]
